FAERS Safety Report 8150331-7 (Version None)
Quarter: 2012Q1

REPORT INFORMATION
  Report Type: 
  Country: None (occurrence: None)
  Receive Date: 20120220
  Receipt Date: 20120215
  Transmission Date: 20120608
  Serious: Yes (Life-Threatening, Hospitalization, Disabling)
  Sender: FDA-Public Use
  Company Number: US-BAYER-2011-057079

PATIENT
  Age: 18 Year
  Sex: Female

DRUGS (5)
  1. YAZ [Suspect]
  2. HEPARIN [Concomitant]
  3. COUMADIN [Concomitant]
  4. YASMIN [Suspect]
  5. DROSPIRENONE AND ETHINYL ESTRADIOL [Suspect]

REACTIONS (8)
  - EMOTIONAL DISTRESS [None]
  - DEEP VEIN THROMBOSIS [None]
  - GENERAL PHYSICAL HEALTH DETERIORATION [None]
  - ANHEDONIA [None]
  - THROMBOSIS [None]
  - ANXIETY [None]
  - INJURY [None]
  - PAIN [None]
